FAERS Safety Report 9310984 (Version 2)
Quarter: 2014Q1

REPORT INFORMATION
  Report Type: Spontaneous
  Country: PT (occurrence: PT)
  Receive Date: 20130528
  Receipt Date: 20140317
  Transmission Date: 20141002
  Serious: Yes (Other)
  Sender: FDA-Public Use
  Company Number: PT-009507513-1305PRT003676

PATIENT
  Age: 42 Year
  Sex: Male

DRUGS (3)
  1. VICTRELIS [Suspect]
     Indication: HEPATITIS C
     Dosage: UNK
     Route: 048
     Dates: start: 201303, end: 201309
  2. REBETOL [Suspect]
     Indication: HEPATITIS C
     Dosage: UNK
     Route: 048
  3. PEGASYS [Suspect]
     Indication: HEPATITIS C
     Dosage: UNK

REACTIONS (4)
  - Breath odour [Recovered/Resolved]
  - Libido decreased [Recovered/Resolved]
  - Fatigue [Recovered/Resolved]
  - No therapeutic response [Unknown]
